FAERS Safety Report 4727306-0 (Version None)
Quarter: 2005Q3

REPORT INFORMATION
  Report Type: 
  Country: None (occurrence: None)
  Receive Date: 20050727
  Receipt Date: 20050727
  Transmission Date: 20060218
  Serious: Yes (Hospitalization)
  Sender: FDA-Public Use
  Company Number: None

PATIENT
  Age: 74 Year
  Sex: Male
  Weight: 82.4 kg

DRUGS (11)
  1. CYCLOPHOSPHAMIDE [Suspect]
     Indication: NON-HODGKIN'S LYMPHOMA
     Dosage: VARIOUS, VARIOUS, INTRAVEN
     Route: 042
  2. LISINOPRIL [Concomitant]
  3. SIMVASTATIN [Concomitant]
  4. HYDROCHLOROTHIAZIDE [Concomitant]
  5. SYNTHROID [Concomitant]
  6. CLOPIDOGREL BISULFATE [Concomitant]
  7. OMEPRAZOLE [Concomitant]
  8. PROCHLORPERAZINE MALEATE [Concomitant]
  9. PREDNISONE [Concomitant]
  10. ALBUTEROL/IPRATROP [Concomitant]
  11. ATENOLOL [Concomitant]

REACTIONS (1)
  - NEUTROPENIA [None]
